FAERS Safety Report 16827231 (Version 1)
Quarter: 2019Q3

REPORT INFORMATION
  Report Type: Spontaneous
  Country: CZ (occurrence: CZ)
  Receive Date: 20190919
  Receipt Date: 20190919
  Transmission Date: 20191005
  Serious: Yes (Other)
  Sender: FDA-Public Use
  Company Number: CZ-GLAXOSMITHKLINE-CZ2019168630

PATIENT
  Sex: Female

DRUGS (3)
  1. COTRIMOXAZOL AL FORTE [Suspect]
     Active Substance: SULFAMETHOXAZOLE\TRIMETHOPRIM
     Dosage: 1600 MG, TID
     Route: 065
     Dates: start: 20190901, end: 20190904
  2. BACTROBAN [Suspect]
     Active Substance: MUPIROCIN\MUPIROCIN CALCIUM
     Indication: INFECTION
     Dosage: UNK
     Route: 065
  3. COTRIMOXAZOL AL FORTE [Suspect]
     Active Substance: SULFAMETHOXAZOLE\TRIMETHOPRIM
     Indication: PRODUCT USED FOR UNKNOWN INDICATION
     Dosage: 1600 MG, BID
     Route: 065
     Dates: start: 20190905

REACTIONS (2)
  - Dermatitis allergic [Unknown]
  - Skin reaction [Unknown]
